FAERS Safety Report 4317368-7 (Version None)
Quarter: 2004Q1

REPORT INFORMATION
  Report Type: 
  Country: None (occurrence: None)
  Receive Date: 20040316
  Receipt Date: 20040316
  Transmission Date: 20041129
  Serious: Yes (Life-Threatening, Hospitalization)
  Sender: FDA-Public Use
  Company Number: None

PATIENT
  Age: 34 Year
  Sex: Female

DRUGS (5)
  1. REMICADE [Suspect]
     Indication: RHEUMATOID ARTHRITIS
     Dates: start: 20001201, end: 20021201
  2. METHOTREXATE [Concomitant]
  3. PREDNISONE [Concomitant]
  4. DEPAKOTE [Concomitant]
  5. ENBREL [Concomitant]

REACTIONS (13)
  - ACID FAST BACILLI INFECTION [None]
  - ASTHENIA [None]
  - BRONCHOPULMONARY ASPERGILLOSIS [None]
  - DISEASE PROGRESSION [None]
  - GASTROINTESTINAL DISORDER [None]
  - LUNG ABSCESS [None]
  - LUNG NEOPLASM [None]
  - MALAISE [None]
  - MYCOBACTERIUM AVIUM COMPLEX INFECTION [None]
  - NAUSEA [None]
  - RESPIRATORY FAILURE [None]
  - VOMITING [None]
  - WEIGHT DECREASED [None]
